FAERS Safety Report 18642835 (Version 1)
Quarter: 2020Q4

REPORT INFORMATION
  Report Type: Spontaneous
  Country: US (occurrence: US)
  Receive Date: 20201219
  Receipt Date: 20201219
  Transmission Date: 20210114
  Serious: Yes (Other)
  Sender: FDA-Public Use
  Company Number: None

PATIENT
  Age: 77 Year
  Sex: Female
  Weight: 46.35 kg

DRUGS (11)
  1. MULTI-VITAMIN [Concomitant]
     Active Substance: .ALPHA.-TOCOPHEROL ACETATE, DL-\ASCORBIC ACID\CYANOCOBALAMIN\FLUORIDE ION\FOLIC ACID\NIACIN\PYRIDOXINE\RIBOFLAVIN\THIAMINE\VITAMIN A\VITAMIN D
  2. KETOROLAC [Concomitant]
     Active Substance: KETOROLAC TROMETHAMINE
  3. BANDAGE CONTACT LENS [Concomitant]
     Active Substance: DEVICE
  4. FISH OIL [Concomitant]
     Active Substance: FISH OIL
  5. ARTIFICIAL TEARS [Concomitant]
     Active Substance: GLYCERIN\HYPROMELLOSES\POLYETHYLENE GLYCOL 400
  6. OMEGA-3 FATTY ACIDS [Concomitant]
     Active Substance: OMEGA-3 FATTY ACIDS
  7. DOXYCYCLINE. [Concomitant]
     Active Substance: DOXYCYCLINE
  8. SERUM TEARS [Concomitant]
  9. TACROLIMUS .03% OINTMENT [Suspect]
     Active Substance: TACROLIMUS
     Indication: EYE INFLAMMATION
     Dosage: ?          OTHER ROUTE:LIDS OF BOTH EYES?
     Dates: start: 20201218, end: 20201219
  10. OFLOXACIN. [Concomitant]
     Active Substance: OFLOXACIN
  11. HYDROXYCHLOROQUINE [Concomitant]
     Active Substance: HYDROXYCHLOROQUINE

REACTIONS (1)
  - Hypersensitivity [None]

NARRATIVE: CASE EVENT DATE: 20201218
